FAERS Safety Report 23864527 (Version 1)
Quarter: 2024Q2

REPORT INFORMATION
  Report Type: Spontaneous
  Country: US (occurrence: US)
  Receive Date: 20240516
  Receipt Date: 20240516
  Transmission Date: 20240716
  Serious: No
  Sender: FDA-Public Use
  Company Number: US-SA-SAC20240511000118

PATIENT
  Age: 55 Year
  Sex: Male
  Weight: 75.29 kg

DRUGS (1)
  1. FABRAZYME [Suspect]
     Active Substance: AGALSIDASE BETA
     Indication: Fabry^s disease
     Dosage: 75 MG QOW
     Route: 042
     Dates: start: 201609

REACTIONS (1)
  - Weight increased [Unknown]
